FAERS Safety Report 6313948-8 (Version None)
Quarter: 2009Q3

REPORT INFORMATION
  Report Type: 
  Country: None (occurrence: None)
  Receive Date: 20090818
  Receipt Date: 20090812
  Transmission Date: 20100115
  Serious: Yes (Other)
  Sender: FDA-Public Use
  Company Number: GB-TEVA-205918ISR

PATIENT
  Age: 17 Year
  Sex: Female

DRUGS (1)
  1. SERTRALINE [Suspect]
     Dates: start: 20090201

REACTIONS (4)
  - ARRHYTHMIA [None]
  - CARDIAC ARREST [None]
  - FALL [None]
  - FATIGUE [None]
